FAERS Safety Report 4885385-4 (Version None)
Quarter: 2005Q4

REPORT INFORMATION
  Report Type: 
  Country: None (occurrence: None)
  Receive Date: 20051222
  Receipt Date: 20050815
  Transmission Date: 20060501
  Serious: Yes (Other)
  Sender: FDA-Public Use
  Company Number: 200507151

PATIENT
  Age: 49 Year
  Sex: Female
  Weight: 61.2356 kg

DRUGS (4)
  1. ELESTAT [Suspect]
     Indication: CONJUNCTIVITIS ALLERGIC
     Dosage: 2 DROP QHS EYE
     Dates: start: 20050808, end: 20050810
  2. ATIVIAN [Concomitant]
  3. ZEPHREX [Concomitant]
  4. ACYCLOVIR [Concomitant]

REACTIONS (5)
  - DRUG INEFFECTIVE [None]
  - DRY EYE [None]
  - EYE DISCHARGE [None]
  - EYE PRURITUS [None]
  - EYE SWELLING [None]
